FAERS Safety Report 13370997 (Version 1)
Quarter: 2017Q1

REPORT INFORMATION
  Report Type: Spontaneous
  Country: US (occurrence: US)
  Receive Date: 20170324
  Receipt Date: 20170324
  Transmission Date: 20170429
  Serious: No
  Sender: FDA-Public Use
  Company Number: US-GALDERMA-US16004913

PATIENT
  Age: 62 Year
  Sex: Female

DRUGS (4)
  1. DOXYCYCLINE (DOXYCYCLINE) TABLETS, 20 MG [Suspect]
     Active Substance: DOXYCYCLINE
     Indication: ROSACEA
     Dosage: 40 MG
     Route: 048
     Dates: start: 201603, end: 20160613
  2. ASPIRIN (ACETYLSALICYLIC ACID) [Concomitant]
     Active Substance: ASPIRIN
     Indication: PRODUCT USED FOR UNKNOWN INDICATION
     Route: 048
  3. DOXYCYCLINE (DOXYCYCLINE) TABLETS, 20 MG [Suspect]
     Active Substance: DOXYCYCLINE
     Dosage: 20 MG
     Route: 048
     Dates: start: 20160614
  4. UNKNOWN HIGH BLOOD PRESSURE MEDICATION [Concomitant]
     Indication: HYPERTENSION
     Route: 048

REACTIONS (2)
  - Rosacea [Not Recovered/Not Resolved]
  - Pain of skin [Recovered/Resolved]

NARRATIVE: CASE EVENT DATE: 2016
